FAERS Safety Report 8100399-9 (Version None)
Quarter: 2012Q1

REPORT INFORMATION
  Report Type: 
  Country: None (occurrence: None)
  Receive Date: 20120129
  Receipt Date: 20111202
  Transmission Date: 20120608
  Serious: No
  Sender: FDA-Public Use
  Company Number: US-ABBOTT-11P-163-0874856-00

PATIENT
  Age: 23 Year
  Sex: Male

DRUGS (1)
  1. HUMIRA [Suspect]
     Indication: PSORIASIS
     Dates: start: 20110901

REACTIONS (9)
  - ACNE [None]
  - INJECTION SITE HAEMORRHAGE [None]
  - SCAR [None]
  - SKIN DISCOLOURATION [None]
  - COUGH [None]
  - SINUS CONGESTION [None]
  - OROPHARYNGEAL DISCOMFORT [None]
  - UNEVALUABLE EVENT [None]
  - PSORIASIS [None]
